FAERS Safety Report 4831260-0 (Version None)
Quarter: 2005Q4

REPORT INFORMATION
  Report Type: 
  Country: None (occurrence: None)
  Receive Date: 20051116
  Receipt Date: 20051116
  Transmission Date: 20060501
  Serious: Yes (Hospitalization)
  Sender: FDA-Public Use
  Company Number: None

PATIENT
  Age: 62 Year
  Sex: Female
  Weight: 85.2762 kg

DRUGS (2)
  1. GLEEVEC [Suspect]
     Indication: BREAST CANCER METASTATIC
     Dosage: 400 MG BID PO
     Route: 048
     Dates: start: 20050830, end: 20051007
  2. TAXOL [Suspect]
     Indication: BREAST CANCER METASTATIC
     Dosage: 100 MG/M2 IV
     Route: 042
     Dates: start: 20050901, end: 20051006

REACTIONS (4)
  - ATRIAL FIBRILLATION [None]
  - GASTROINTESTINAL HAEMORRHAGE [None]
  - NEOPLASM PROGRESSION [None]
  - SINUS TACHYCARDIA [None]
